FAERS Safety Report 24615107 (Version 2)
Quarter: 2024Q4

REPORT INFORMATION
  Report Type: Spontaneous
  Country: CN (occurrence: CN)
  Receive Date: 20241113
  Receipt Date: 20241120
  Transmission Date: 20250114
  Serious: Yes (Life-Threatening, Other)
  Sender: PFIZER
  Company Number: CN-MLMSERVICE-20241101-PI247768-00182-1

PATIENT
  Age: 4 Year
  Sex: Female

DRUGS (8)
  1. IRINOTECAN HYDROCHLORIDE [Suspect]
     Active Substance: IRINOTECAN HYDROCHLORIDE
     Indication: Ganglioglioma
     Dosage: 9 FOUR-WEEKLY CYCLES OF 150 MG/M2, ON DAY 1 AND DAY 14
     Dates: start: 202207
  2. IRINOTECAN HYDROCHLORIDE [Suspect]
     Active Substance: IRINOTECAN HYDROCHLORIDE
     Indication: Neoplasm recurrence
  3. TEMOZOLOMIDE [Suspect]
     Active Substance: TEMOZOLOMIDE
     Indication: Ganglioglioma
     Dosage: 9 FOUR-WEEKLY CYCLES OF TEMOZOLOMIDE (150 MG/M2, ON DAYS 1-5)
     Dates: start: 202207
  4. TEMOZOLOMIDE [Suspect]
     Active Substance: TEMOZOLOMIDE
     Indication: Neoplasm recurrence
  5. VINDESINE [Suspect]
     Active Substance: VINDESINE
     Dosage: UNK, CYCLIC
  6. CISPLATIN [Suspect]
     Active Substance: CISPLATIN
     Dosage: UNK, CYCLIC
  7. ETOPOSIDE [Suspect]
     Active Substance: ETOPOSIDE
     Dosage: UNK, CYCLIC
  8. IFOSFAMIDE [Suspect]
     Active Substance: IFOSFAMIDE
     Dosage: UNK, CYCLIC

REACTIONS (4)
  - Transaminases increased [Unknown]
  - Leukopenia [Unknown]
  - Off label use [Unknown]
  - Off label use [Unknown]

NARRATIVE: CASE EVENT DATE: 20220701
